FAERS Safety Report 6960221-0 (Version None)
Quarter: 2010Q3

REPORT INFORMATION
  Report Type: 
  Country: None (occurrence: None)
  Receive Date: 20100901
  Receipt Date: 20100825
  Transmission Date: 20110219
  Serious: Yes (Death, Hospitalization)
  Sender: FDA-Public Use
  Company Number: JP-BAYER-201012890BYL

PATIENT
  Age: 75 Year
  Sex: Male
  Weight: 62 kg

DRUGS (16)
  1. NEXAVAR [Suspect]
     Indication: RENAL CELL CARCINOMA
     Dosage: UNIT DOSE: 200 MG
     Route: 048
     Dates: start: 20091109, end: 20091203
  2. NEXAVAR [Suspect]
     Dosage: UNIT DOSE: 200 MG
     Route: 048
     Dates: start: 20091218, end: 20100126
  3. SUTENT [Suspect]
     Indication: PRODUCT USED FOR UNKNOWN INDICATION
     Dosage: UNIT DOSE: 12.5 MG
     Route: 048
     Dates: start: 20090807, end: 20090821
  4. SUTENT [Suspect]
     Dosage: UNIT DOSE: 12.5 MG
     Route: 048
     Dates: start: 20090822, end: 20090831
  5. SUTENT [Suspect]
     Dosage: UNIT DOSE: 12.5 MG
     Route: 048
     Dates: start: 20090930, end: 20091013
  6. SUTENT [Suspect]
     Dosage: UNIT DOSE: 12.5 MG
     Route: 048
     Dates: start: 20090918, end: 20090929
  7. MUCOSTA [Concomitant]
     Indication: ABDOMINAL DISCOMFORT
     Dosage: UNIT DOSE: 100 MG
     Route: 048
  8. LENDORMIN [Concomitant]
     Indication: INSOMNIA
     Dosage: UNIT DOSE: 0.25 MG
     Route: 048
  9. AMLODIPINE BESYLATE [Concomitant]
     Indication: BLOOD PRESSURE MANAGEMENT
     Dosage: UNIT DOSE: 5 MG
     Route: 048
  10. TAKEPRON [Concomitant]
     Indication: ABDOMINAL DISCOMFORT
     Dosage: UNIT DOSE: 15 MG
     Route: 048
  11. MAGMITT [Concomitant]
     Indication: CONSTIPATION
     Dosage: UNIT DOSE: 330 MG
     Route: 048
  12. HYPEN [Concomitant]
     Indication: PAIN MANAGEMENT
     Dosage: UNIT DOSE: 200 MG
     Route: 048
  13. NOVAMIN [Concomitant]
     Indication: PROPHYLAXIS
     Dosage: UNIT DOSE: 5 MG
     Route: 048
  14. FERO-GRADUMET [Concomitant]
     Indication: ANAEMIA
     Dosage: UNIT DOSE: 105 MG
     Route: 048
  15. P GUARD [Concomitant]
     Indication: PAIN MANAGEMENT
     Dosage: UNIT DOSE: 60 MG
     Route: 048
     Dates: start: 20091113
  16. RED BLOOD CELLS [Concomitant]
     Dosage: 2 UNITS
     Route: 042
     Dates: start: 20100109, end: 20100109

REACTIONS (2)
  - RENAL CELL CARCINOMA [None]
  - SPLENIC INFARCTION [None]
